FAERS Safety Report 4723553-2 (Version None)
Quarter: 2005Q3

REPORT INFORMATION
  Report Type: 
  Country: None (occurrence: None)
  Receive Date: 20050720
  Receipt Date: 20050720
  Transmission Date: 20060218
  Serious: Yes (Hospitalization)
  Sender: FDA-Public Use
  Company Number: None

PATIENT
  Age: 78 Year
  Sex: Male
  Weight: 68.0396 kg

DRUGS (10)
  1. LISINOPRIL [Suspect]
     Indication: HYPERTENSION
     Dosage: 20 M PO QD
     Route: 048
     Dates: start: 20041101, end: 20050201
  2. HYDROCHLOROTHIAZIDE [Concomitant]
  3. FESO4 [Concomitant]
  4. POTASSIUM CHLORIDE [Concomitant]
  5. ALBUTEROL [Concomitant]
  6. SERTRALINE HCL [Concomitant]
  7. ANTACID LIQ [Concomitant]
  8. TRAVAPROST [Concomitant]
  9. VIAGRA [Concomitant]
  10. OMEPRAZOLE [Concomitant]

REACTIONS (1)
  - SWELLING FACE [None]
